FAERS Safety Report 9559447 (Version 1)
Quarter: 2013Q3

REPORT INFORMATION
  Report Type: Spontaneous
  Country: US (occurrence: None)
  Receive Date: 20130906
  Receipt Date: 20130906
  Transmission Date: 20140515
  Serious: No
  Sender: FDA-Public Use
  Company Number: 163-POMAL-13073532

PATIENT
  Age: 78 Year
  Sex: Male
  Weight: 75.7 kg

DRUGS (8)
  1. POMALYST [Suspect]
     Indication: PLASMA CELL MYELOMA
     Dosage: 2 MG, 21 IN 28 D, PO
     Route: 048
     Dates: start: 201210
  2. ASPIRIN (ACETYLSALICYLIC ACID) (CHEWABLE TABLET) [Concomitant]
  3. CENTRUM MULTIVITAMIN (CENTRUM) (CHEWABLE TABLETS) [Concomitant]
  4. DEXAMETHASONE (DEXAMETHASONE) (TABLETS) [Concomitant]
  5. FUROSEMIDE (FUROSEMIDE) (TABLETS) [Concomitant]
  6. ZOMETA (ZOLEDRONIC ACID) (UNKNOWN) [Concomitant]
  7. ACYCLOVIR (ACICLOVIR) (TABLETS) [Concomitant]
  8. TEMAZEPAM (TEMAZEPAM) (CAPSULES) [Concomitant]

REACTIONS (1)
  - Nasopharyngitis [None]
